FAERS Safety Report 21032591 (Version 1)
Quarter: 2022Q2

REPORT INFORMATION
  Report Type: Spontaneous
  Country: US (occurrence: None)
  Receive Date: 20220630
  Receipt Date: 20220630
  Transmission Date: 20220721
  Serious: Yes (Hospitalization)
  Sender: FDA-Public Use
  Company Number: None

PATIENT
  Age: 61 Year
  Sex: Female

DRUGS (1)
  1. CAPECITABINE [Suspect]
     Active Substance: CAPECITABINE
     Dosage: FREQUENCY : TWICE A DAY;?
     Route: 048

REACTIONS (11)
  - Loss of consciousness [None]
  - Head injury [None]
  - Fatigue [None]
  - COVID-19 [None]
  - Nausea [None]
  - Headache [None]
  - Dizziness [None]
  - Skin discolouration [None]
  - Skin exfoliation [None]
  - Dry skin [None]
  - Blood potassium decreased [None]

NARRATIVE: CASE EVENT DATE: 20220525
